FAERS Safety Report 18372107 (Version 2)
Quarter: 2020Q4

REPORT INFORMATION
  Report Type: Spontaneous
  Country: US (occurrence: US)
  Receive Date: 20201012
  Receipt Date: 20201215
  Transmission Date: 20210114
  Serious: Yes (Other)
  Sender: FDA-Public Use
  Company Number: US-PFIZER INC-2020389984

PATIENT
  Age: 54 Year
  Sex: Male
  Weight: 73.92 kg

DRUGS (1)
  1. BENEFIX [Suspect]
     Active Substance: COAGULATION FACTOR IX RECOMBINANT HUMAN\ISOPROPYL ALCOHOL
     Indication: FACTOR XI DEFICIENCY
     Dosage: UNK (INFUSE 3200 UNITS (+/-10%)) FOR MINOR BLEEDS/(7800 UNITS (+/-10%) FOR MAJOR BLEEDS)
     Route: 042
     Dates: start: 201812

REACTIONS (1)
  - Haemarthrosis [Unknown]
